FAERS Safety Report 7772420-9 (Version None)
Quarter: 2011Q3

REPORT INFORMATION
  Report Type: 
  Country: None (occurrence: None)
  Receive Date: 20110922
  Receipt Date: 20110608
  Transmission Date: 20111222
  Serious: Yes (Other)
  Sender: FDA-Public Use
  Company Number: PHHY2011NL51035

PATIENT
  Sex: Female

DRUGS (5)
  1. AMOXICILLIN [Suspect]
     Indication: ANTIBIOTIC THERAPY
     Dosage: 1 DF, TID
     Route: 048
     Dates: start: 20110510, end: 20110511
  2. OMEPRAZOLE [Concomitant]
     Dosage: 1 DF, QD
     Route: 048
     Dates: start: 20110511
  3. DICLOFENAC [Concomitant]
     Dosage: 1 DF, TID
     Route: 048
     Dates: start: 20110511
  4. CHLORHEXIDINE GLUCONATE [Concomitant]
     Dosage: RINSE BID
     Route: 048
     Dates: start: 20110511
  5. RISEDRONATE SODIUM [Concomitant]
     Dosage: 1 DF, QW
     Route: 048
     Dates: start: 20051130

REACTIONS (7)
  - SWELLING [None]
  - PALMAR-PLANTAR ERYTHRODYSAESTHESIA SYNDROME [None]
  - ERYTHEMA [None]
  - PRURITUS [None]
  - SKIN EXFOLIATION [None]
  - MALAISE [None]
  - PAIN [None]
